FAERS Safety Report 10373686 (Version 1)
Quarter: 2014Q1

REPORT INFORMATION
  Report Type: Spontaneous
  Country: US (occurrence: None)
  Receive Date: 20140306
  Receipt Date: 20140306
  Transmission Date: 20141002
  Serious: Yes (Other)
  Sender: FDA-Public Use
  Company Number: 163-21880-13071713

PATIENT
  Age: 66 Year
  Sex: Female

DRUGS (3)
  1. REVLIMID (LENALIDOMIDE) (10 MILLIGRAM, CAPSULES) [Suspect]
     Indication: PLASMA CELL MYELOMA
     Dosage: 21 IN 28 D
     Route: 048
     Dates: start: 20120609
  2. ASA (ACETYLSALICYLIC ACID) [Concomitant]
  3. BIAXIN (CLARITHROMYCIN) [Concomitant]

REACTIONS (1)
  - Drug dose omission [None]
